FAERS Safety Report 19096210 (Version 1)
Quarter: 2021Q2

REPORT INFORMATION
  Report Type: Spontaneous
  Country: US (occurrence: US)
  Receive Date: 20210406
  Receipt Date: 20210406
  Transmission Date: 20210717
  Serious: Yes (Death, Hospitalization, Other)
  Sender: FDA-Public Use
  Company Number: US-APOTEX-2021AP007824

PATIENT
  Age: 57 Year
  Sex: Male

DRUGS (1)
  1. METFORMIN [Suspect]
     Active Substance: METFORMIN HYDROCHLORIDE
     Indication: PRODUCT USED FOR UNKNOWN INDICATION
     Dosage: UNK
     Route: 065

REACTIONS (6)
  - Accidental exposure to product [Unknown]
  - Lactic acidosis [Fatal]
  - Cardiac arrest [Recovering/Resolving]
  - Toxicity to various agents [Unknown]
  - Drug level increased [Unknown]
  - Multiple organ dysfunction syndrome [Fatal]
